FAERS Safety Report 25836211 (Version 1)
Quarter: 2025Q3

REPORT INFORMATION
  Report Type: Spontaneous
  Country: US (occurrence: None)
  Receive Date: 20250922
  Receipt Date: 20250922
  Transmission Date: 20251021
  Serious: Yes (Death)
  Sender: FDA-CTU
  Company Number: None

PATIENT
  Age: 69 Year
  Sex: Male

DRUGS (1)
  1. TADALAFIL [Suspect]
     Active Substance: TADALAFIL
     Indication: Pulmonary hypertension
     Dosage: FREQUENCY : DAILY;?
     Route: 048
     Dates: start: 20190121, end: 20250917

REACTIONS (9)
  - Pneumonia staphylococcal [None]
  - Septic shock [None]
  - Cardiogenic shock [None]
  - Acute respiratory failure [None]
  - Tachycardia [None]
  - Ischaemic hepatitis [None]
  - Lactic acidosis [None]
  - Agitation [None]
  - Leukocytosis [None]

NARRATIVE: CASE EVENT DATE: 20250917
